FAERS Safety Report 12483352 (Version 2)
Quarter: 2016Q3

REPORT INFORMATION
  Report Type: Spontaneous
  Country: US (occurrence: US)
  Receive Date: 20160621
  Receipt Date: 20160720
  Transmission Date: 20161109
  Serious: Yes (Other)
  Sender: FDA-Public Use
  Company Number: US-BAXTER-2016BAX031834

PATIENT
  Age: 62 Year
  Sex: Female

DRUGS (2)
  1. NITROGLYCERIN IN DEXTROSE [Suspect]
     Active Substance: NITROGLYCERIN
     Dosage: BOTTLE 2
     Route: 065
     Dates: start: 20160610
  2. NITROGLYCERIN IN DEXTROSE [Suspect]
     Active Substance: NITROGLYCERIN
     Indication: PRODUCT USED FOR UNKNOWN INDICATION
     Dosage: BOTTLE 1
     Route: 065
     Dates: start: 20160610

REACTIONS (1)
  - Therapy non-responder [Recovered/Resolved]

NARRATIVE: CASE EVENT DATE: 20160610
